FAERS Safety Report 20596401 (Version 2)
Quarter: 2022Q1

REPORT INFORMATION
  Report Type: Report from Study
  Country: US (occurrence: US)
  Receive Date: 20220315
  Receipt Date: 20220321
  Transmission Date: 20220423
  Serious: Yes (Hospitalization, Other)
  Sender: FDA-Public Use
  Company Number: US-BoehringerIngelheim-2022-BI-159342

PATIENT
  Age: 85 Year
  Sex: Female

DRUGS (1)
  1. OFEV [Suspect]
     Active Substance: NINTEDANIB
     Indication: Idiopathic pulmonary fibrosis
     Route: 048
     Dates: start: 20220106

REACTIONS (7)
  - Dyspnoea [Unknown]
  - Cardiac failure congestive [Unknown]
  - Hypertensive urgency [Unknown]
  - Blood pressure increased [Unknown]
  - Pleural effusion [Unknown]
  - Oedema peripheral [Unknown]
  - Pericardial effusion [Unknown]

NARRATIVE: CASE EVENT DATE: 20220214
